FAERS Safety Report 7904802-6 (Version None)
Quarter: 2011Q4

REPORT INFORMATION
  Report Type: 
  Country: None (occurrence: None)
  Receive Date: 20111109
  Receipt Date: 20111025
  Transmission Date: 20120403
  Serious: Yes (Hospitalization, Other)
  Sender: FDA-Public Use
  Company Number: PHHO2011US17983

PATIENT
  Sex: Female

DRUGS (15)
  1. INSULIN LISPRO [Suspect]
     Indication: TYPE 2 DIABETES MELLITUS
     Dosage: UNK
     Dates: start: 20110202, end: 20110217
  2. RANEXA [Suspect]
     Dosage: 1000 MG, UNK
     Dates: start: 20110202, end: 20110217
  3. ASPIRIN [Concomitant]
  4. MORPHINE [Concomitant]
     Dosage: UNK
     Dates: start: 20110202, end: 20110203
  5. DICLOFENAC SODIUM [Suspect]
     Indication: TYPE 2 DIABETES MELLITUS
  6. NOVOLOG [Suspect]
     Indication: TYPE 2 DIABETES MELLITUS
     Dosage: 30 IU, UNK
     Dates: start: 20090518
  7. LANTUS [Suspect]
     Indication: TYPE 2 DIABETES MELLITUS
     Dosage: 180 IU, UNK
     Dates: start: 20090601
  8. LASIX [Concomitant]
     Dosage: UNK
     Dates: start: 20110202, end: 20110204
  9. HYDRALAZINE HCL [Concomitant]
     Dosage: UNK
     Dates: start: 20110202, end: 20110202
  10. SODIUM CHLORIDE [Concomitant]
     Dosage: UNK
     Dates: start: 20110202, end: 20110204
  11. ACTOS [Suspect]
     Indication: TYPE 2 DIABETES MELLITUS
     Dosage: UNK
     Dates: start: 20101215, end: 20110211
  12. NITRATES [Concomitant]
  13. SAXAGLIPTIN [Suspect]
     Indication: TYPE 2 DIABETES MELLITUS
     Dosage: UNK
     Dates: start: 20101019
  14. NITROGLYCERIN [Concomitant]
     Dosage: UNK
     Dates: start: 20110202, end: 20110215
  15. HUMALOG [Concomitant]
     Dosage: UNK
     Dates: start: 20110215, end: 20110217

REACTIONS (17)
  - PULMONARY OEDEMA [None]
  - RENAL FAILURE ACUTE [None]
  - NAUSEA [None]
  - TREMOR [None]
  - IRRITABLE BOWEL SYNDROME [None]
  - VOMITING [None]
  - NON-CARDIAC CHEST PAIN [None]
  - REFLUX GASTRITIS [None]
  - CARDIOMEGALY [None]
  - GASTRITIS [None]
  - HYPERHIDROSIS [None]
  - SUICIDAL IDEATION [None]
  - DEPRESSION [None]
  - ANXIETY [None]
  - ASTHMA [None]
  - HYPERGLYCAEMIA [None]
  - ABDOMINAL PAIN [None]
